FAERS Safety Report 8294163-8 (Version None)
Quarter: 2012Q2

REPORT INFORMATION
  Report Type: 
  Country: None (occurrence: None)
  Receive Date: 20120418
  Receipt Date: 20120413
  Transmission Date: 20120825
  Serious: Yes (Other)
  Sender: FDA-Public Use
  Company Number: PHHY2012AU031786

PATIENT
  Sex: Female

DRUGS (3)
  1. EXJADE [Suspect]
     Indication: IRON OVERLOAD
     Dosage: 500 MG, UNK
     Dates: start: 20111020
  2. ANAESTHETICS [Concomitant]
  3. MABTHERA [Concomitant]
     Indication: NON-HODGKIN'S LYMPHOMA
     Dosage: EVERY THREE MONTHS
     Dates: start: 20110801

REACTIONS (3)
  - TUMOUR MARKER INCREASED [None]
  - ENDOMETRITIS [None]
  - VAGINAL DISCHARGE [None]
